FAERS Safety Report 24361081 (Version 1)
Quarter: 2024Q3

REPORT INFORMATION
  Report Type: Spontaneous
  Country: SE (occurrence: SE)
  Receive Date: 20240925
  Receipt Date: 20240925
  Transmission Date: 20241016
  Serious: Yes (Life-Threatening)
  Sender: TAKEDA
  Company Number: None

PATIENT
  Age: 33 Year
  Sex: Female
  Weight: 85 kg

DRUGS (1)
  1. LISDEXAMFETAMINE DIMESYLATE [Suspect]
     Active Substance: LISDEXAMFETAMINE DIMESYLATE
     Indication: Attention deficit hyperactivity disorder
     Dosage: 20 MILLIGRAM, Q12H
     Route: 048
     Dates: end: 20240906

REACTIONS (7)
  - Premenstrual syndrome [Recovered/Resolved]
  - Fatigue [Recovering/Resolving]
  - Anxiety [Recovering/Resolving]
  - Condition aggravated [Recovered/Resolved]
  - Depression [Recovering/Resolving]
  - Suicidal ideation [Recovering/Resolving]
  - Aggression [Recovering/Resolving]

NARRATIVE: CASE EVENT DATE: 20240226
